FAERS Safety Report 25779929 (Version 1)
Quarter: 2025Q3

REPORT INFORMATION
  Report Type: Spontaneous
  Country: US (occurrence: None)
  Receive Date: 20250908
  Receipt Date: 20250908
  Transmission Date: 20251021
  Serious: Yes (Hospitalization)
  Sender: FDA-CTU
  Company Number: None

PATIENT
  Age: 65 Year
  Sex: Female

DRUGS (10)
  1. MYCOPHENOLATE MOFETIL [Suspect]
     Active Substance: MYCOPHENOLATE MOFETIL
     Indication: Heart transplant
     Dosage: 750 MG TWICE A DAY ORAL
     Route: 048
     Dates: start: 20250520, end: 20250902
  2. ENVARSUS XR [Suspect]
     Active Substance: TACROLIMUS
     Indication: Heart transplant
     Dosage: 20 MG DAILY ORAL ?
     Route: 048
     Dates: start: 20250708
  3. AMLODIPINE [Concomitant]
     Active Substance: AMLODIPINE BESYLATE
     Dates: start: 20250521, end: 20250908
  4. BUMETANIDE [Concomitant]
     Active Substance: BUMETANIDE
     Dates: start: 20250521
  5. DOXAZOSIN [Concomitant]
     Active Substance: DOXAZOSIN MESYLATE
     Dates: start: 20250709, end: 20250908
  6. ONDANSETRON [Concomitant]
     Active Substance: ONDANSETRON
     Dates: start: 20250709
  7. PREDNISONE [Concomitant]
     Active Substance: PREDNISONE
     Dates: start: 20250521
  8. ROSUVASTATIN [Concomitant]
     Active Substance: ROSUVASTATIN
     Dates: start: 20250521
  9. VALSARTAN [Concomitant]
     Active Substance: VALSARTAN
     Dates: start: 20250709, end: 20250908
  10. VITAMIN D3 [Concomitant]
     Active Substance: CHOLECALCIFEROL
     Dates: start: 20250709

REACTIONS (4)
  - Fluid retention [None]
  - Dyspnoea [None]
  - Confusional state [None]
  - Dyspnoea [None]
